FAERS Safety Report 20859574 (Version 1)
Quarter: 2022Q2

REPORT INFORMATION
  Report Type: Spontaneous
  Country: AT (occurrence: AU)
  Receive Date: 20220523
  Receipt Date: 20220523
  Transmission Date: 20220720
  Serious: Yes (Other)
  Sender: FDA-Public Use
  Company Number: AT-BoehringerIngelheim-2022-BI-172007

PATIENT
  Age: 7 Year
  Sex: Female

DRUGS (1)
  1. CLONIDINE [Suspect]
     Active Substance: CLONIDINE
     Indication: Product used for unknown indication

REACTIONS (4)
  - Seizure [Unknown]
  - Bradycardia [Unknown]
  - Hypotension [Unknown]
  - Product use issue [Unknown]
